FAERS Safety Report 15251226 (Version 1)
Quarter: 2018Q3

REPORT INFORMATION
  Report Type: Spontaneous
  Country: BR (occurrence: BR)
  Receive Date: 20180807
  Receipt Date: 20180807
  Transmission Date: 20181010
  Serious: Yes (Other)
  Sender: FDA-Public Use
  Company Number: BR-PFIZER INC-2018281212

PATIENT
  Age: 82 Year
  Sex: Female

DRUGS (2)
  1. FRONTAL [Suspect]
     Active Substance: ALPRAZOLAM
     Indication: ANXIETY
     Dosage: 1 MG AT NIGHT
     Dates: end: 2018
  2. PRISTIQ EXTENDED?RELEASE [Suspect]
     Active Substance: DESVENLAFAXINE SUCCINATE
     Indication: DEPRESSION
     Dosage: 100 MG AT MORNING
     Dates: end: 2018

REACTIONS (13)
  - Dry mouth [Recovered/Resolved]
  - Asthenia [Recovered/Resolved]
  - Intentional product misuse [Unknown]
  - Motion sickness [Recovered/Resolved]
  - Abdominal pain [Recovered/Resolved]
  - Dry throat [Recovered/Resolved]
  - Hypoacusis [Recovered/Resolved]
  - Tremor [Recovered/Resolved]
  - Dizziness [Recovered/Resolved]
  - Panic disorder [Recovered/Resolved]
  - Suicidal ideation [Recovered/Resolved]
  - Nausea [Recovered/Resolved]
  - Feeling of despair [Recovered/Resolved]
